FAERS Safety Report 8366082-X (Version None)
Quarter: 2012Q2

REPORT INFORMATION
  Report Type: 
  Country: None (occurrence: None)
  Receive Date: 20120517
  Receipt Date: 20120507
  Transmission Date: 20120825
  Serious: Yes (Life-Threatening, Hospitalization)
  Sender: FDA-Public Use
  Company Number: FR-ELI_LILLY_AND_COMPANY-FR201205001922

PATIENT
  Age: 47 Year
  Sex: Male

DRUGS (4)
  1. PAROXETINE HYDROCHLORIDE [Concomitant]
     Dosage: 10 MG, QD
  2. ZYPREXA [Suspect]
     Dosage: 5 MG, QD
     Route: 048
     Dates: end: 20120321
  3. CLOZAPINE [Concomitant]
     Dosage: 150 MG, QD
     Dates: start: 20120321
  4. CLOZAPINE [Concomitant]
     Dosage: 50 MG, QD
     Dates: start: 20120214

REACTIONS (1)
  - PULMONARY EMBOLISM [None]
